FAERS Safety Report 19352202 (Version 1)
Quarter: 2021Q2

REPORT INFORMATION
  Report Type: Spontaneous
  Country: US (occurrence: US)
  Receive Date: 20210531
  Receipt Date: 20210531
  Transmission Date: 20210717
  Serious: Yes (Other)
  Sender: FDA-Public Use
  Company Number: US-ENDO PHARMACEUTICALS INC-2021-002260

PATIENT
  Age: 47 Year
  Sex: Female

DRUGS (12)
  1. ZANTAC [Suspect]
     Active Substance: RANITIDINE HYDROCHLORIDE
     Dosage: 150 MG, DAILY
     Route: 065
     Dates: start: 199501, end: 201906
  2. ZANTAC [Suspect]
     Active Substance: RANITIDINE HYDROCHLORIDE
     Dosage: 150 MG, DAILY
     Route: 065
     Dates: start: 199501, end: 201906
  3. RANITIDINE. [Suspect]
     Active Substance: RANITIDINE
     Indication: GASTROOESOPHAGEAL REFLUX DISEASE
     Dosage: 75 MG, PRN
     Route: 065
     Dates: start: 199708, end: 201906
  4. ZANTAC [Suspect]
     Active Substance: RANITIDINE HYDROCHLORIDE
     Dosage: 300 MG, DAILY
     Route: 065
     Dates: start: 199501, end: 201906
  5. RANITIDINE HYDROCHLORIDE. [Suspect]
     Active Substance: RANITIDINE HYDROCHLORIDE
     Indication: GASTROOESOPHAGEAL REFLUX DISEASE
     Dosage: 150 MG, PRN
     Route: 065
     Dates: start: 199708, end: 201906
  6. ZANTAC [Suspect]
     Active Substance: RANITIDINE HYDROCHLORIDE
     Indication: GASTROOESOPHAGEAL REFLUX DISEASE
     Dosage: 75 MG, DAILY
     Route: 065
     Dates: start: 199501, end: 201906
  7. ZANTAC [Suspect]
     Active Substance: RANITIDINE HYDROCHLORIDE
     Dosage: 300 MG, DAILY
     Route: 065
     Dates: start: 199501, end: 201906
  8. RANITIDINE HYDROCHLORIDE. [Suspect]
     Active Substance: RANITIDINE HYDROCHLORIDE
     Dosage: 300 MG, PRN
     Route: 065
     Dates: start: 199708, end: 201906
  9. RANITIDINE. [Suspect]
     Active Substance: RANITIDINE
     Indication: GASTROOESOPHAGEAL REFLUX DISEASE
     Dosage: 75 MG, PRN
     Route: 065
     Dates: start: 199708, end: 201906
  10. ZANTAC [Suspect]
     Active Substance: RANITIDINE HYDROCHLORIDE
     Indication: GASTROOESOPHAGEAL REFLUX DISEASE
     Dosage: 75 MG, DAILY
     Route: 065
     Dates: start: 199501, end: 201906
  11. RANITIDINE. [Suspect]
     Active Substance: RANITIDINE
     Dosage: 150 MG, PRN
     Route: 065
     Dates: start: 199708, end: 201906
  12. RANITIDINE. [Suspect]
     Active Substance: RANITIDINE
     Dosage: 300 MG, PRN
     Route: 065
     Dates: start: 199708, end: 201906

REACTIONS (1)
  - Renal cancer stage IV [Recovering/Resolving]

NARRATIVE: CASE EVENT DATE: 20170601
